FAERS Safety Report 25824000 (Version 1)
Quarter: 2025Q3

REPORT INFORMATION
  Report Type: Spontaneous
  Country: US (occurrence: None)
  Receive Date: 20250919
  Receipt Date: 20250919
  Transmission Date: 20251020
  Serious: Yes (Hospitalization)
  Sender: FDA-CTU
  Company Number: None

PATIENT
  Sex: Female

DRUGS (2)
  1. WINREVAIR [Suspect]
     Active Substance: SOTATERCEPT-CSRK
     Indication: Pulmonary arterial hypertension
     Dosage: OTHER FREQUENCY : EVERY 3 WEEKS;?
     Route: 058
     Dates: start: 20250325
  2. REMODULIN [Concomitant]
     Active Substance: TREPROSTINIL

REACTIONS (14)
  - Pain in jaw [None]
  - Pain in extremity [None]
  - Chest pain [None]
  - Fatigue [None]
  - Syncope [None]
  - Dizziness [None]
  - Peripheral swelling [None]
  - Joint swelling [None]
  - Abnormal loss of weight [None]
  - General physical health deterioration [None]
  - Decreased activity [None]
  - Pericardial effusion [None]
  - Therapy cessation [None]
  - Fluid retention [None]
